FAERS Safety Report 7115510-6 (Version None)
Quarter: 2010Q4

REPORT INFORMATION
  Report Type: 
  Country: None (occurrence: None)
  Receive Date: 20101122
  Receipt Date: 20100915
  Transmission Date: 20110411
  Serious: No
  Sender: FDA-Public Use
  Company Number: US-BAYER-201027591NA

PATIENT
  Age: 49 Year
  Sex: Female

DRUGS (3)
  1. CLIMARA PRO [Suspect]
     Indication: HOT FLUSH
     Route: 062
     Dates: start: 20100601
  2. CLIMARA PRO [Suspect]
     Route: 062
  3. VIVELLE [Concomitant]
     Dates: start: 20100401

REACTIONS (1)
  - COLD SWEAT [None]
